FAERS Safety Report 22063546 (Version 1)
Quarter: 2023Q1

REPORT INFORMATION
  Report Type: Spontaneous
  Country: IN (occurrence: IN)
  Receive Date: 20230306
  Receipt Date: 20230306
  Transmission Date: 20230418
  Serious: Yes (Hospitalization, Other)
  Sender: FDA-Public Use
  Company Number: IN-CIPLA (EU) LIMITED-2023IN01162

PATIENT

DRUGS (4)
  1. ALBUTEROL [Suspect]
     Active Substance: ALBUTEROL
     Indication: Pneumonia fungal
     Dosage: UNK, SOS
     Route: 065
     Dates: start: 201709, end: 201709
  2. AMPHOTERICIN B [Suspect]
     Active Substance: AMPHOTERICIN B
     Indication: Pneumonia fungal
     Dosage: UNK, BID
     Route: 065
     Dates: start: 201709, end: 201709
  3. INSULIN HUMAN [Suspect]
     Active Substance: INSULIN HUMAN
     Indication: Product used for unknown indication
     Dosage: 10 UT, BID
     Route: 065
     Dates: start: 201709, end: 201709
  4. OXYGEN [Suspect]
     Active Substance: OXYGEN
     Indication: Product used for unknown indication
     Dosage: UNK
     Route: 065
     Dates: start: 201709, end: 201709

REACTIONS (3)
  - Condition aggravated [Unknown]
  - Weight decreased [Recovered/Resolved]
  - Therapy non-responder [Unknown]

NARRATIVE: CASE EVENT DATE: 20170901
